FAERS Safety Report 5030862-9 (Version None)
Quarter: 2006Q2

REPORT INFORMATION
  Report Type: 
  Country: None (occurrence: None)
  Receive Date: 20060621
  Receipt Date: 20060609
  Transmission Date: 20061013
  Serious: Yes (Life-Threatening, Hospitalization)
  Sender: FDA-Public Use
  Company Number: CA-JNJFOC-20050404569

PATIENT
  Sex: Female
  Weight: 64.7 kg

DRUGS (10)
  1. REMICADE [Suspect]
     Route: 042
  2. REMICADE [Suspect]
     Route: 042
  3. REMICADE [Suspect]
     Indication: RHEUMATOID ARTHRITIS
     Route: 042
  4. CELEBREX [Concomitant]
     Indication: RHEUMATOID ARTHRITIS
     Dosage: 200 MG, DAILY AS NEEDED
     Route: 048
  5. TYLENOL (CAPLET) [Concomitant]
     Indication: RHEUMATOID ARTHRITIS
     Route: 048
  6. METHOTREXATE [Concomitant]
     Indication: RHEUMATOID ARTHRITIS
     Route: 058
  7. FOLIC ACID [Concomitant]
     Indication: RHEUMATOID ARTHRITIS
     Route: 048
  8. NEXIUM [Concomitant]
     Indication: DYSPEPSIA
     Route: 048
  9. FOSAMAX [Concomitant]
     Indication: OSTEOPENIA
     Route: 048
  10. LUMIGAN [Concomitant]
     Indication: GLAUCOMA

REACTIONS (3)
  - ABSCESS [None]
  - DIVERTICULAR PERFORATION [None]
  - PERITONITIS [None]
